FAERS Safety Report 4421841-0 (Version None)
Quarter: 2004Q3

REPORT INFORMATION
  Report Type: 
  Country: None (occurrence: None)
  Receive Date: 20040806
  Receipt Date: 20040726
  Transmission Date: 20050211
  Serious: Yes (Hospitalization)
  Sender: FDA-Public Use
  Company Number: 2004UW16187

PATIENT
  Age: 46 Year
  Sex: Male
  Weight: 73.0291 kg

DRUGS (3)
  1. RISPERIDONE [Suspect]
     Indication: SCHIZOPHRENIA
     Dosage: 4 MG DAILY PO
     Route: 048
     Dates: start: 20040520, end: 20040722
  2. WELLBUTRIN [Concomitant]
  3. IBUPROFEN [Concomitant]

REACTIONS (4)
  - AGITATION [None]
  - ANXIETY [None]
  - GAS POISONING [None]
  - PSYCHOTIC DISORDER [None]
